FAERS Safety Report 22099783 (Version 9)
Quarter: 2025Q2

REPORT INFORMATION
  Report Type: Spontaneous
  Country: US (occurrence: US)
  Receive Date: 20230315
  Receipt Date: 20250610
  Transmission Date: 20250717
  Serious: No
  Sender: PFIZER
  Company Number: US-PFIZER INC-202300112132

PATIENT
  Age: 78 Year
  Sex: Female
  Weight: 52.154 kg

DRUGS (3)
  1. BOSULIF [Suspect]
     Active Substance: BOSUTINIB MONOHYDRATE
     Indication: Breast cancer female
     Dosage: 400 MG, DAILY
     Route: 048
     Dates: start: 20220127
  2. XANAX [Concomitant]
     Active Substance: ALPRAZOLAM
     Dosage: UNK, DAILY (0.3 PER DAY)
  3. VITAMINS [Concomitant]
     Active Substance: VITAMINS

REACTIONS (6)
  - Fatigue [Unknown]
  - Blood iron decreased [Unknown]
  - Asthenia [Unknown]
  - Memory impairment [Unknown]
  - Drug effective for unapproved indication [Unknown]
  - Off label use [Unknown]

NARRATIVE: CASE EVENT DATE: 20221101
